FAERS Safety Report 5741168-4 (Version None)
Quarter: 2008Q2

REPORT INFORMATION
  Report Type: 
  Country: None (occurrence: None)
  Receive Date: 20080514
  Receipt Date: 20080429
  Transmission Date: 20081010
  Serious: Yes (Other)
  Sender: FDA-Public Use
  Company Number: 002#2#2008-00337

PATIENT
  Age: 67 Year
  Sex: Female
  Weight: 51.2565 kg

DRUGS (2)
  1. NEUPRO [Suspect]
     Indication: PARKINSON'S DISEASE
     Dosage: 6MG/24H,1 IN 1 D,TRANSDERMAL
     Route: 062
     Dates: start: 20071001, end: 20080321
  2. SINEMET [Concomitant]

REACTIONS (7)
  - CEREBROVASCULAR ACCIDENT [None]
  - CONDITION AGGRAVATED [None]
  - MUSCLE TIGHTNESS [None]
  - PARKINSON'S DISEASE [None]
  - STOMACH DISCOMFORT [None]
  - THERAPEUTIC RESPONSE UNEXPECTED WITH DRUG SUBSTITUTION [None]
  - TREMOR [None]
